FAERS Safety Report 8520048-5 (Version None)
Quarter: 2012Q3

REPORT INFORMATION
  Report Type: 
  Country: None (occurrence: None)
  Receive Date: 20120719
  Receipt Date: 20120716
  Transmission Date: 20120928
  Serious: No
  Sender: FDA-Public Use
  Company Number: US-PFIZER INC-2012172097

PATIENT
  Sex: Female
  Weight: 83.9 kg

DRUGS (2)
  1. CHANTIX [Suspect]
     Indication: SMOKING CESSATION THERAPY
     Dosage: 0.5 MG, DAILY
     Dates: start: 20120623, end: 20120101
  2. CHANTIX [Suspect]
     Dosage: UNK
     Dates: start: 20120101

REACTIONS (4)
  - ABNORMAL DREAMS [None]
  - HYPERSOMNIA [None]
  - FEELING OF RELAXATION [None]
  - FATIGUE [None]
